FAERS Safety Report 24224989 (Version 1)
Quarter: 2024Q3

REPORT INFORMATION
  Report Type: Spontaneous
  Country: SA (occurrence: SA)
  Receive Date: 20240820
  Receipt Date: 20240820
  Transmission Date: 20241017
  Serious: Yes (Hospitalization)
  Sender: CHEPLAPHARM
  Company Number: SA-CHEPLA-2024010589

PATIENT
  Age: 2 Month
  Sex: Female

DRUGS (2)
  1. GANCICLOVIR [Suspect]
     Active Substance: GANCICLOVIR
     Indication: Cytomegalovirus infection
     Dosage: DAILY DOSE: 15 MILLIGRAM/KG
     Route: 042
  2. VALGANCICLOVIR [Suspect]
     Active Substance: VALGANCICLOVIR
     Indication: Cytomegalovirus infection
     Dosage: DAILY DOSE: 30 MILLIGRAM/KG
     Route: 042

REACTIONS (4)
  - Respiratory distress [Not Recovered/Not Resolved]
  - Condition aggravated [Not Recovered/Not Resolved]
  - Off label use [Recovered/Resolved]
  - Off label use [Recovered/Resolved]
